FAERS Safety Report 8078927-1 (Version None)
Quarter: 2012Q1

REPORT INFORMATION
  Report Type: 
  Country: None (occurrence: None)
  Receive Date: 20120128
  Receipt Date: 20110504
  Transmission Date: 20120608
  Serious: No
  Sender: FDA-Public Use
  Company Number: US-ABBOTT-11P-163-0723431-00

PATIENT
  Age: 35 Year
  Sex: Female

DRUGS (20)
  1. ZANTAC [Concomitant]
     Indication: PRODUCT USED FOR UNKNOWN INDICATION
  2. SYNTHROID [Concomitant]
     Indication: PRODUCT USED FOR UNKNOWN INDICATION
     Dosage: 75 MCG DAILY
     Route: 048
     Dates: start: 20030101
  3. LOVASTATIN [Concomitant]
     Indication: PRODUCT USED FOR UNKNOWN INDICATION
     Dosage: 40 MG DAILY
     Dates: start: 20050101
  4. CELEBREX [Concomitant]
     Indication: PRODUCT USED FOR UNKNOWN INDICATION
     Dosage: 200 MG DAILY
  5. OXYCODONE HCL [Concomitant]
     Indication: PRODUCT USED FOR UNKNOWN INDICATION
     Dosage: 15 MG PRN
  6. THYROID TAB [Concomitant]
     Indication: PRODUCT USED FOR UNKNOWN INDICATION
     Dosage: 60 GRAINS DAILY
  7. LEVORA 0.15/30-21 [Concomitant]
     Indication: CONTRACEPTION
     Dosage: 28
     Dates: start: 20060101
  8. EYE DROPS [Concomitant]
     Indication: DRY EYE
  9. METOPROLOL TARTRATE [Concomitant]
     Indication: CHEST PAIN
     Dosage: 25MG-1/2 DAILY
  10. ZYRTEC [Concomitant]
     Indication: PRODUCT USED FOR UNKNOWN INDICATION
     Dosage: 10 MG DAILY
  11. MOS4 EXTENDED RELEASE [Concomitant]
     Indication: PRODUCT USED FOR UNKNOWN INDICATION
  12. PROBIOTICS [Concomitant]
     Indication: PRODUCT USED FOR UNKNOWN INDICATION
  13. HUMIRA [Suspect]
     Indication: ANKYLOSING SPONDYLITIS
     Dates: start: 20100701
  14. HUMIRA [Suspect]
     Dates: start: 20110301
  15. SPIRONOLACTONE [Concomitant]
     Indication: PRODUCT USED FOR UNKNOWN INDICATION
     Dates: start: 20060101
  16. METFFORMIN HYDROCHLORIDE [Concomitant]
     Indication: PRODUCT USED FOR UNKNOWN INDICATION
     Dates: start: 20060101
  17. METOPROLOL TARTRATE [Concomitant]
     Indication: DYSPEPSIA
  18. VITAMIN B-12 [Concomitant]
     Indication: PRODUCT USED FOR UNKNOWN INDICATION
  19. LEXAPRO [Concomitant]
     Indication: PRODUCT USED FOR UNKNOWN INDICATION
     Dosage: 10 MG DAILY
  20. VITAMIN D [Concomitant]
     Indication: PRODUCT USED FOR UNKNOWN INDICATION
     Dosage: DAILY

REACTIONS (8)
  - MALAISE [None]
  - VAGINAL INFECTION [None]
  - OEDEMA PERIPHERAL [None]
  - PAIN [None]
  - URETHRITIS [None]
  - URINARY TRACT INFECTION [None]
  - DYSPNOEA [None]
  - GAIT DISTURBANCE [None]
